FAERS Safety Report 16642007 (Version 1)
Quarter: 2019Q3

REPORT INFORMATION
  Report Type: Spontaneous
  Country: US (occurrence: US)
  Receive Date: 20190726
  Receipt Date: 20190726
  Transmission Date: 20191004
  Serious: Yes (Hospitalization)
  Sender: FDA-Public Use
  Company Number: None

PATIENT
  Age: 67 Year
  Sex: Male

DRUGS (2)
  1. SILDENAFIL. [Suspect]
     Active Substance: SILDENAFIL
     Indication: PULMONARY ARTERIAL HYPERTENSION
  2. BREO ELLIPTA INH 100-25 [Concomitant]

REACTIONS (3)
  - Therapy change [None]
  - Cardiac failure congestive [None]
  - Pulmonary arterial hypertension [None]

NARRATIVE: CASE EVENT DATE: 20190624
